FAERS Safety Report 7275917-3 (Version None)
Quarter: 2011Q1

REPORT INFORMATION
  Report Type: 
  Country: None (occurrence: None)
  Receive Date: 20110204
  Receipt Date: 20110201
  Transmission Date: 20110831
  Serious: Yes (Other)
  Sender: FDA-Public Use
  Company Number: A0849599A

PATIENT
  Sex: Female

DRUGS (2)
  1. TYKERB [Suspect]
     Dosage: 1250MG PER DAY
     Route: 048
     Dates: start: 20100209, end: 20110117
  2. DOXORUBICIN [Concomitant]

REACTIONS (2)
  - NEOPLASM MALIGNANT [None]
  - DIARRHOEA [None]
